FAERS Safety Report 4473250-6 (Version None)
Quarter: 2004Q4

REPORT INFORMATION
  Report Type: 
  Country: None (occurrence: None)
  Receive Date: 20041007
  Receipt Date: 20041007
  Transmission Date: 20050328
  Serious: Yes (Disabling)
  Sender: FDA-Public Use
  Company Number: None

PATIENT
  Age: 54 Year
  Sex: Male
  Weight: 96.1626 kg

DRUGS (1)
  1. GENTAMICIN SULFATE [Suspect]
     Indication: OSTEOMYELITIS
     Dosage: 480 MG 1 EVERY IV
     Route: 042
     Dates: start: 20040109, end: 20040301

REACTIONS (4)
  - MEDICATION ERROR [None]
  - OTOTOXICITY [None]
  - OVERDOSE [None]
  - VESTIBULAR DISORDER [None]
